FAERS Safety Report 8464212-2 (Version None)
Quarter: 2012Q2

REPORT INFORMATION
  Report Type: 
  Country: None (occurrence: None)
  Receive Date: 20120625
  Receipt Date: 20120619
  Transmission Date: 20120825
  Serious: Yes (Hospitalization, Other)
  Sender: FDA-Public Use
  Company Number: US-BAXTER-2012BAX008656

PATIENT
  Sex: Female

DRUGS (2)
  1. DIANEAL [Suspect]
     Route: 033
  2. DIANEAL LOW CALCIUM W/ DEXTROSE 1.5% [Suspect]
     Route: 033

REACTIONS (6)
  - LIMB INJURY [None]
  - LOCALISED INFECTION [None]
  - DYSPNOEA [None]
  - PERITONITIS [None]
  - IMPAIRED HEALING [None]
  - PERITONEAL DIALYSIS COMPLICATION [None]
